FAERS Safety Report 6640217-9 (Version None)
Quarter: 2010Q1

REPORT INFORMATION
  Report Type: 
  Country: None (occurrence: None)
  Receive Date: 20100318
  Receipt Date: 20100309
  Transmission Date: 20100710
  Serious: Yes (Hospitalization)
  Sender: FDA-Public Use
  Company Number: FR-AMGEN-US375554

PATIENT
  Sex: Female

DRUGS (7)
  1. ENBREL [Suspect]
     Indication: PUSTULAR PSORIASIS
     Route: 058
     Dates: start: 20090729
  2. ENBREL [Suspect]
     Route: 058
     Dates: start: 20090101
  3. CORTANCYL [Suspect]
     Indication: PUSTULAR PSORIASIS
     Dosage: UNKNOWN; THEN DOSE WAS PROGRESSIVELY REDUCED  FROM 20-JUL-2009
     Route: 048
     Dates: start: 20090628
  4. BETNEVAL [Suspect]
     Indication: PUSTULAR PSORIASIS
     Dosage: UNKNOWN
     Route: 003
  5. DIFFU K [Concomitant]
     Indication: HYPOKALAEMIA
     Route: 048
  6. ATARAX [Concomitant]
     Indication: ANXIETY
     Dosage: 25 MG STRENGTH; DOSE UNKNOWN
     Route: 048
  7. OROCAL [Concomitant]
     Indication: CALCIUM DEFICIENCY
     Dosage: UNKNOWN
     Route: 048

REACTIONS (4)
  - CONDITION AGGRAVATED [None]
  - DRUG INEFFECTIVE [None]
  - HERPES ZOSTER [None]
  - PUSTULAR PSORIASIS [None]
